FAERS Safety Report 17816662 (Version 3)
Quarter: 2020Q4

REPORT INFORMATION
  Report Type: Report from Study
  Country: US (occurrence: US)
  Receive Date: 20200522
  Receipt Date: 20201118
  Transmission Date: 20210113
  Serious: Yes (Life-Threatening, Hospitalization, Other)
  Sender: FDA-Public Use
  Company Number: US-SA-2020SA105988

PATIENT

DRUGS (24)
  1. VANCOMYCIN [Concomitant]
     Active Substance: VANCOMYCIN
     Dosage: 1500 MG, BID
     Route: 042
     Dates: start: 20200412, end: 20200412
  2. MEROPENEM. [Concomitant]
     Active Substance: MEROPENEM
     Indication: COVID-19 PNEUMONIA
     Dosage: 500 MG, QID
     Route: 042
     Dates: start: 20200407, end: 20200412
  3. CASPOFUNGIN [Concomitant]
     Active Substance: CASPOFUNGIN
     Indication: COVID-19 PNEUMONIA
     Dosage: 70 MG, SINGLE
     Route: 042
     Dates: start: 20200417, end: 20200417
  4. MEROPENEM. [Concomitant]
     Active Substance: MEROPENEM
     Dosage: 1000 MG, Q12H
     Route: 042
     Dates: start: 20200406, end: 20200407
  5. VANCOMYCIN [Concomitant]
     Active Substance: VANCOMYCIN
     Indication: COVID-19 PNEUMONIA
     Dosage: 1500 MG, QD
     Route: 042
     Dates: start: 20200406, end: 20200407
  6. MEROPENEM. [Concomitant]
     Active Substance: MEROPENEM
     Dosage: 1000 MG, 1X
     Route: 042
     Dates: start: 20200418, end: 20200418
  7. LOVENOX [Concomitant]
     Active Substance: ENOXAPARIN SODIUM
     Dosage: 105 MG, Q12H
     Route: 058
     Dates: start: 20200411, end: 20200425
  8. HEPARIN [Concomitant]
     Active Substance: HEPARIN SODIUM
     Indication: PROPHYLAXIS
  9. CASPOFUNGIN [Concomitant]
     Active Substance: CASPOFUNGIN
     Indication: ANTIFUNGAL TREATMENT
     Dosage: 50 MG, QD
     Route: 042
     Dates: start: 20200418, end: 20200422
  10. CIPROFLOXACIN. [Concomitant]
     Active Substance: CIPROFLOXACIN
     Indication: OTITIS EXTERNA
     Dosage: 5 DROPS, BID (TO LEFT EAR CANNAL)
     Dates: start: 20200412, end: 20200501
  11. HYDROXYCHLOROQUINE [Concomitant]
     Active Substance: HYDROXYCHLOROQUINE
     Indication: COVID-19
     Dosage: 400MG DAY 1, 200MG DAY2-5, Q12H
     Route: 048
     Dates: start: 20200325, end: 20200330
  12. VANCOMYCIN [Concomitant]
     Active Substance: VANCOMYCIN
     Dosage: 1500 MG, BID
     Route: 042
     Dates: start: 20190408, end: 20200410
  13. CEFTRIAXONE. [Concomitant]
     Active Substance: CEFTRIAXONE
     Indication: COVID-19 PNEUMONIA
     Dosage: 1000 MG, QD
     Route: 042
     Dates: start: 20200324, end: 20200330
  14. AZITHROMYCIN ANHYDROUS. [Concomitant]
     Active Substance: AZITHROMYCIN ANHYDROUS
     Indication: COVID-19 PNEUMONIA
     Dosage: 500 MG, QD
     Route: 042
     Dates: start: 20200324, end: 20200325
  15. DOXYCYCLINE. [Concomitant]
     Active Substance: DOXYCYCLINE
     Indication: COVID-19 PNEUMONIA
     Dosage: 100 MG, BID
     Route: 048
     Dates: start: 20200325, end: 20200326
  16. SARILUMAB [Suspect]
     Active Substance: SARILUMAB
     Indication: COVID-19
     Dosage: 200 MG, 1X
     Route: 042
     Dates: start: 20200327, end: 20200327
  17. ACETAMINOPHEN. [Concomitant]
     Active Substance: ACETAMINOPHEN
     Dosage: 650 MG, AS NECESSARY, PRN
     Route: 048
     Dates: start: 20200403, end: 20200420
  18. ACETAMINOPHEN. [Concomitant]
     Active Substance: ACETAMINOPHEN
     Indication: PYREXIA
     Dosage: 975 MG, AS NECESSARY, PRN GIVEN ONLY 24 MAR AND 13 APR
     Route: 048
     Dates: start: 20200324, end: 20200413
  19. HEPARIN [Concomitant]
     Active Substance: HEPARIN SODIUM
     Indication: PROPHYLAXIS
     Dosage: 5000 U, TID
     Route: 058
     Dates: start: 20200327, end: 20200411
  20. ZOSYN [Concomitant]
     Active Substance: PIPERACILLIN SODIUM\TAZOBACTAM SODIUM
     Indication: COVID-19 PNEUMONIA
     Dosage: 3.375 G, QID
     Route: 042
     Dates: start: 20200404, end: 20200406
  21. DEXAMETHASONE SODIUM PHOSPHATE. [Concomitant]
     Active Substance: DEXAMETHASONE SODIUM PHOSPHATE
     Indication: OTITIS EXTERNA
     Dosage: 5 DROPS, BID
     Route: 001
     Dates: start: 20200404, end: 20200501
  22. MERREM [Concomitant]
     Active Substance: MEROPENEM
     Indication: COVID-19 PNEUMONIA
     Dosage: 500 MG, QID
     Route: 042
     Dates: start: 20200412, end: 20200412
  23. CEFEPIME [Concomitant]
     Active Substance: CEFEPIME HYDROCHLORIDE
     Indication: COVID-19 PNEUMONIA
     Dosage: 1000 MG, TID
     Route: 042
     Dates: start: 20200415, end: 20200418
  24. LOVENOX [Concomitant]
     Active Substance: ENOXAPARIN SODIUM
     Indication: PROPHYLAXIS
     Dosage: 40 MG, QD
     Route: 058
     Dates: start: 20200326, end: 20200326

REACTIONS (9)
  - Bacteraemia [Recovered/Resolved]
  - Hypotension [Recovered/Resolved]
  - Appendicitis [Recovered/Resolved with Sequelae]
  - Large intestine perforation [Recovered/Resolved with Sequelae]
  - Hypotension [Recovered/Resolved]
  - Anaemia [Recovered/Resolved]
  - Hypotension [Recovered/Resolved]
  - Deep vein thrombosis [Not Recovered/Not Resolved]
  - Decubitus ulcer [Not Recovered/Not Resolved]

NARRATIVE: CASE EVENT DATE: 20200409
